FAERS Safety Report 6532992-9 (Version None)
Quarter: 2010Q1

REPORT INFORMATION
  Report Type: 
  Country: None (occurrence: None)
  Receive Date: 20100111
  Receipt Date: 20100104
  Transmission Date: 20100710
  Serious: Yes (Other)
  Sender: FDA-Public Use
  Company Number: PHHY2010DE00721

PATIENT
  Sex: Female

DRUGS (1)
  1. EXFORGE [Suspect]
     Indication: BLOOD PRESSURE INCREASED
     Dosage: UNK
     Dates: start: 20090101

REACTIONS (3)
  - GAIT DISTURBANCE [None]
  - LIMB DISCOMFORT [None]
  - PAIN [None]
